FAERS Safety Report 15585809 (Version 1)
Quarter: 2018Q4

REPORT INFORMATION
  Report Type: Spontaneous
  Country: DE (occurrence: DE)
  Receive Date: 20181105
  Receipt Date: 20181105
  Transmission Date: 20190205
  Serious: Yes (Congenital Anomaly)
  Sender: FDA-Public Use
  Company Number: DE-BAYER-2018-199910

PATIENT
  Age: 0 Year

DRUGS (7)
  1. NAPROXEN SODIUM ({= 220 MG) [Suspect]
     Active Substance: NAPROXEN SODIUM
     Indication: RHEUMATOID ARTHRITIS
     Dosage: 250 MG, QD, 0.-6. GESTATIONAL WEEK
     Route: 064
     Dates: start: 20180327, end: 20180508
  2. OMEPRAZOL [Concomitant]
     Active Substance: OMEPRAZOLE
     Indication: GASTRITIS PROPHYLAXIS
     Dosage: 20 MG, QD, DURING THE FIRST TRIMESTER
     Route: 064
  3. PRENATAL [Concomitant]
     Active Substance: VITAMINS
     Indication: PROPHYLAXIS OF NEURAL TUBE DEFECT
     Dosage: 0.8 MG, QD, DURING THE FIRST TRIMESTER
     Route: 064
     Dates: start: 20180327, end: 20180514
  4. L-THYROXIN [Concomitant]
     Active Substance: LEVOTHYROXINE SODIUM
     Indication: HYPOTHYROIDISM
     Dosage: 75 ?G, QD, DURING THE FIRST TRIMESTER
     Route: 064
  5. PREDNISOLON [Concomitant]
     Active Substance: PREDNISOLONE
     Indication: RHEUMATOID ARTHRITIS
     Dosage: 5 MG, QD, DURING THE FIRST TRIMESTER
     Route: 064
  6. IBUPROFEN. [Concomitant]
     Active Substance: IBUPROFEN
     Indication: RHEUMATOID ARTHRITIS
     Dosage: DURING THE FIRST TRIMESTER
     Route: 064
  7. PARACETAMOL [Concomitant]
     Active Substance: ACETAMINOPHEN
     Indication: RHEUMATOID ARTHRITIS
     Dosage: 500 MG, ON TWO OCCASIONS 500 MG EACH, DURING THE FIRST TRIMESTER
     Route: 064

REACTIONS (1)
  - Anencephaly [Not Recovered/Not Resolved]
